FAERS Safety Report 14359398 (Version 3)
Quarter: 2018Q4

REPORT INFORMATION
  Report Type: Spontaneous
  Country: US (occurrence: US)
  Receive Date: 20180105
  Receipt Date: 20181227
  Transmission Date: 20190204
  Serious: Yes (Other)
  Sender: FDA-Public Use
  Company Number: US-SA-2017SA187303

PATIENT
  Age: 66 Year
  Sex: Female

DRUGS (2)
  1. ZANTAC [Suspect]
     Active Substance: RANITIDINE HYDROCHLORIDE
     Indication: DYSPEPSIA
     Dosage: 150 MG,TID
     Route: 048
  2. ZANTAC [Suspect]
     Active Substance: RANITIDINE HYDROCHLORIDE
     Dosage: 150MG IN THE MORNING, 75MG BEFORE DINNER AND 150MG BEFORE BED
     Route: 048

REACTIONS (14)
  - Asthenia [Recovering/Resolving]
  - Overdose [Unknown]
  - Syncope [Unknown]
  - Dizziness [Unknown]
  - Anal incontinence [Unknown]
  - Heart rate decreased [Unknown]
  - Product use issue [Unknown]
  - Blood pressure systolic increased [Not Recovered/Not Resolved]
  - Loss of consciousness [Unknown]
  - Contusion [Unknown]
  - Fatigue [Recovering/Resolving]
  - Feeling abnormal [Unknown]
  - Bronchitis [Unknown]
  - Glossodynia [Unknown]
